FAERS Safety Report 14370658 (Version 1)
Quarter: 2018Q1

REPORT INFORMATION
  Report Type: Spontaneous
  Country: US (occurrence: US)
  Receive Date: 20180110
  Receipt Date: 20180110
  Transmission Date: 20180509
  Serious: No
  Sender: FDA-Public Use
  Company Number: US-PFIZER INC-2018004636

PATIENT
  Age: 42 Year
  Sex: Female
  Weight: 68.4 kg

DRUGS (2)
  1. VENTOLIN [Concomitant]
     Active Substance: ALBUTEROL SULFATE
     Indication: RESPIRATORY DISORDER
     Dosage: UNK
     Route: 055
  2. CHANTIX [Suspect]
     Active Substance: VARENICLINE TARTRATE
     Indication: SMOKING CESSATION THERAPY
     Dosage: 0.5 MG, 1X/DAY
     Dates: start: 20180101

REACTIONS (8)
  - Parosmia [Not Recovered/Not Resolved]
  - Gastrointestinal pain [Recovering/Resolving]
  - Abdominal pain upper [Recovering/Resolving]
  - Diarrhoea [Recovering/Resolving]
  - Migraine [Recovering/Resolving]
  - Feeling hot [Recovered/Resolved]
  - Nausea [Recovering/Resolving]
  - Vomiting [Unknown]

NARRATIVE: CASE EVENT DATE: 201801
